FAERS Safety Report 9974931 (Version 1)
Quarter: 2014Q1

REPORT INFORMATION
  Report Type: Report from Study
  Country: US (occurrence: US)
  Receive Date: 20140306
  Receipt Date: 20140306
  Transmission Date: 20141002
  Serious: No
  Sender: FDA-Public Use
  Company Number: US-ABBVIE-13P-163-1159959-00

PATIENT
  Age: 26 Year
  Sex: Female

DRUGS (10)
  1. HUMIRA [Suspect]
     Indication: CROHN^S DISEASE
     Dates: start: 20131016, end: 20131016
  2. HUMIRA [Suspect]
  3. SOLU-MEDROL [Concomitant]
     Indication: CROHN^S DISEASE
  4. PREDNISONE [Concomitant]
     Indication: CROHN^S DISEASE
  5. ATIVAN [Concomitant]
     Indication: ANXIETY
  6. LEXAPRO [Concomitant]
     Indication: DEPRESSION
  7. LEXAPRO [Concomitant]
     Indication: ANXIETY
  8. COLACE [Concomitant]
     Indication: CROHN^S DISEASE
  9. TPN [Concomitant]
     Indication: PRODUCT USED FOR UNKNOWN INDICATION
  10. BENADRYL [Concomitant]
     Indication: PRODUCT USED FOR UNKNOWN INDICATION

REACTIONS (1)
  - Nasopharyngitis [Not Recovered/Not Resolved]
